FAERS Safety Report 7743219-4 (Version None)
Quarter: 2011Q3

REPORT INFORMATION
  Report Type: 
  Country: None (occurrence: None)
  Receive Date: 20110825
  Receipt Date: 20110819
  Transmission Date: 20111222
  Serious: Yes (Death, Hospitalization)
  Sender: FDA-Public Use
  Company Number: WAES 1108USA01845

PATIENT
  Age: 58 Year
  Sex: Male

DRUGS (14)
  1. HYDROCODONE [Concomitant]
  2. CARVEDILOL [Concomitant]
  3. PHENERGAN (PROMETHAZINE HYDROCHL [Concomitant]
  4. DEXAMETHASONE [Concomitant]
  5. FUROSEMIDE [Concomitant]
  6. MORPHINE SULFATE [Concomitant]
  7. CYCLOBENZAPRINE HYDROCHLORIDE [Concomitant]
  8. CAP VORINOSTAT UNK [Suspect]
     Indication: METASTASES TO CENTRAL NERVOUS SYSTEM
     Dosage: DAILY/PO
     Dates: start: 20110623, end: 20110715
  9. HALDOL [Concomitant]
  10. MORPHINE [Concomitant]
  11. SIMVASTATIN [Concomitant]
  12. LEVAQUIN [Concomitant]
  13. ZOFRAN [Concomitant]
  14. LISINOPRIL [Concomitant]

REACTIONS (6)
  - INCORRECT DOSE ADMINISTERED [None]
  - SEPSIS [None]
  - DISEASE PROGRESSION [None]
  - LEUKOCYTOSIS [None]
  - METASTASES TO CENTRAL NERVOUS SYSTEM [None]
  - DRUG DOSE OMISSION [None]
